FAERS Safety Report 7997152-3 (Version None)
Quarter: 2011Q4

REPORT INFORMATION
  Report Type: 
  Country: None (occurrence: None)
  Receive Date: 20111221
  Receipt Date: 20111213
  Transmission Date: 20120403
  Serious: Yes (Other)
  Sender: FDA-Public Use
  Company Number: CN-SANOFI-AVENTIS-2010SA072877

PATIENT
  Age: 53 Year
  Sex: Male

DRUGS (6)
  1. ISOSORBIDE DINITRATE [Concomitant]
     Route: 065
  2. ATORVASTATIN [Interacting]
     Route: 065
  3. CLOPIDOGREL BISULFATE [Suspect]
     Route: 065
  4. ACETYLSALICYLIC ACID SRT [Concomitant]
     Route: 065
  5. METOPROLOL TARTRATE [Concomitant]
     Route: 065
  6. HEPARIN [Concomitant]
     Route: 065

REACTIONS (5)
  - ASPARTATE AMINOTRANSFERASE INCREASED [None]
  - ALANINE AMINOTRANSFERASE INCREASED [None]
  - DRUG INTERACTION [None]
  - HEPATOCELLULAR INJURY [None]
  - GAMMA-GLUTAMYLTRANSFERASE INCREASED [None]
